FAERS Safety Report 16880908 (Version 2)
Quarter: 2019Q4

REPORT INFORMATION
  Report Type: Report from Study
  Country: GB (occurrence: GB)
  Receive Date: 20191003
  Receipt Date: 20191024
  Transmission Date: 20200122
  Serious: Yes (Hospitalization)
  Sender: FDA-Public Use
  Company Number: GB-BRISTOL-MYERS SQUIBB COMPANY-BMS-2019-088942

PATIENT
  Age: 59 Year
  Sex: Female
  Weight: 93 kg

DRUGS (2)
  1. TEMOZOLOMIDE. [Suspect]
     Active Substance: TEMOZOLOMIDE
     Indication: GLIOBLASTOMA
     Dosage: 300 - 400 MG, DAILY FOR 5 DAYS IN 6 X 28 DAY CYCLES
     Route: 048
     Dates: start: 20190709, end: 20190811
  2. IPILIMUMAB [Suspect]
     Active Substance: IPILIMUMAB
     Indication: GLIOBLASTOMA
     Dosage: 290 MILLIGRAM, Q3WK
     Route: 042
     Dates: start: 20190618, end: 20190820

REACTIONS (2)
  - Malaise [Not Recovered/Not Resolved]
  - Diarrhoea [Recovering/Resolving]

NARRATIVE: CASE EVENT DATE: 20190909
